FAERS Safety Report 9232922 (Version 1)
Quarter: 2013Q1

REPORT INFORMATION
  Report Type: Spontaneous
  Country: US (occurrence: None)
  Receive Date: 20121031
  Receipt Date: 20121031
  Transmission Date: 20140127
  Serious: No
  Sender: FDA-Public Use
  Company Number: PHEH2012US012425

PATIENT
  Age: 63 Year
  Sex: Female

DRUGS (3)
  1. GILENYA (FTY) CAPSULE, 0.5MG [Suspect]
     Indication: MULTIPLE SCLEROSIS
     Route: 048
     Dates: start: 20120203
  2. SYNTHROID (LEVOTHYROXINE SODIUM) [Concomitant]
  3. LEXAPRO (ESCITALOPRAM OXALATE) [Concomitant]

REACTIONS (1)
  - Urinary incontinence [None]
